FAERS Safety Report 13250386 (Version 1)
Quarter: 2017Q1

REPORT INFORMATION
  Report Type: Spontaneous
  Country: US (occurrence: US)
  Receive Date: 20170218
  Receipt Date: 20170218
  Transmission Date: 20170428
  Serious: No
  Sender: FDA-Public Use
  Company Number: US-ELI_LILLY_AND_COMPANY-US201702006311

PATIENT
  Sex: Male

DRUGS (1)
  1. HUMALOG [Suspect]
     Active Substance: INSULIN LISPRO
     Indication: PRODUCT USED FOR UNKNOWN INDICATION
     Dosage: 30 U, UNKNOWN
     Route: 065
     Dates: start: 201509

REACTIONS (6)
  - Blood glucose increased [Unknown]
  - Ear discomfort [Unknown]
  - Incorrect dose administered [Unknown]
  - Injection site discomfort [Unknown]
  - Hypoacusis [Unknown]
  - Sinus disorder [Unknown]
